FAERS Safety Report 20019807 (Version 1)
Quarter: 2021Q4

REPORT INFORMATION
  Report Type: Spontaneous
  Country: CZ (occurrence: None)
  Receive Date: 20211101
  Receipt Date: 20211101
  Transmission Date: 20220303
  Serious: Yes (Other)
  Sender: FDA-Public Use
  Company Number: 2021A783355

PATIENT
  Sex: Female

DRUGS (2)
  1. LYNPARZA [Suspect]
     Active Substance: OLAPARIB
     Indication: Ovarian cancer
     Dosage: 2X8 CPS
     Route: 048
     Dates: start: 201902, end: 202006
  2. LYNPARZA [Suspect]
     Active Substance: OLAPARIB
     Indication: Ovarian cancer
     Dosage: 2X6 CPS
     Route: 048
     Dates: start: 202006, end: 202102

REACTIONS (2)
  - Paraesthesia [Recovered/Resolved]
  - Aphthous ulcer [Unknown]
